FAERS Safety Report 16271238 (Version 3)
Quarter: 2019Q2

REPORT INFORMATION
  Report Type: Report from Study
  Country: KR (occurrence: KR)
  Receive Date: 20190503
  Receipt Date: 20190521
  Transmission Date: 20190711
  Serious: Yes (Hospitalization)
  Sender: FDA-Public Use
  Company Number: KR-PFIZER INC-2019180359

PATIENT
  Age: 68 Year
  Sex: Male
  Weight: 72.4 kg

DRUGS (15)
  1. AVELUMAB [Suspect]
     Active Substance: AVELUMAB
     Indication: NON-SMALL CELL LUNG CANCER
     Dosage: 800 MG, EVERY 2 WEEKS
     Route: 042
     Dates: start: 20190130, end: 20190424
  2. PYRIDOXINE [Concomitant]
     Active Substance: PYRIDOXINE
     Indication: PALMAR-PLANTAR ERYTHRODYSAESTHESIA SYNDROME
     Dosage: 50 MG, 2X/DAY
     Route: 048
     Dates: start: 20190326
  3. AXITINIB [Suspect]
     Active Substance: AXITINIB
     Indication: NON-SMALL CELL LUNG CANCER
     Dosage: 5 MG, 2X/DAY
     Route: 048
     Dates: start: 20190130, end: 20190424
  4. SYNTHROID [Concomitant]
     Active Substance: LEVOTHYROXINE SODIUM
     Indication: HYPOTHYROIDISM
     Dosage: 0.05 MG, 1X/DAY
     Route: 048
     Dates: start: 20190327
  5. AZEPTIN [AZELASTINE] [Concomitant]
     Indication: MACULE
     Dosage: 1 MG, 2X/DAY
     Route: 048
     Dates: start: 20190313
  6. TAGAMET [Concomitant]
     Active Substance: CIMETIDINE
     Indication: PROPHYLAXIS
     Dosage: 200 MG, 2X/DAY
     Route: 048
     Dates: start: 20190326
  7. ELOCOM [Concomitant]
     Active Substance: MOMETASONE FUROATE
     Indication: PALMAR-PLANTAR ERYTHRODYSAESTHESIA SYNDROME
     Dosage: 15 G, 1X/DAY
     Route: 061
     Dates: start: 20190327
  8. CRANOS [Concomitant]
     Indication: HYPERTENSION
     Dosage: 6.944 MG, 1X/DAY
     Route: 048
     Dates: start: 2009
  9. DIFUCO [Concomitant]
     Indication: PALMAR-PLANTAR ERYTHRODYSAESTHESIA SYNDROME
     Dosage: 10 G, AS NEEDED
     Route: 061
     Dates: start: 20190313
  10. BEPOTAN [Concomitant]
     Indication: MACULE
     Dosage: 9.64 MG, 2X/DAY
     Route: 048
     Dates: start: 20190313
  11. LYRICA [Concomitant]
     Active Substance: PREGABALIN
     Indication: HEADACHE
     Dosage: 75 MG, 2X/DAY
     Route: 048
     Dates: start: 20190326
  12. AIRTAL [Concomitant]
     Active Substance: ACECLOFENAC
     Indication: HEADACHE
     Dosage: 100 MG, 2X/DAY
     Route: 048
     Dates: start: 20190326
  13. BEAROBAN [Concomitant]
     Indication: PALMAR-PLANTAR ERYTHRODYSAESTHESIA SYNDROME
     Dosage: 10 G, 1X/DAY
     Route: 061
     Dates: start: 20190409
  14. RECTOGESIC [GLYCERYL TRINITRATE] [Concomitant]
     Indication: CONSTIPATION
     Dosage: 30 G, 1X/DAY
     Route: 054
     Dates: start: 20190409
  15. DERMOFIX [Concomitant]
     Indication: MACULE
     Dosage: 100 G, 1X/DAY
     Route: 061
     Dates: start: 20190327

REACTIONS (1)
  - Jejunal perforation [Recovered/Resolved]

NARRATIVE: CASE EVENT DATE: 20190424
